FAERS Safety Report 10217543 (Version 1)
Quarter: 2014Q2

REPORT INFORMATION
  Report Type: Report from Study
  Country: CH (occurrence: CH)
  Receive Date: 20140604
  Receipt Date: 20140604
  Transmission Date: 20141212
  Serious: Yes (Other)
  Sender: FDA-Public Use
  Company Number: CH-MYLANLABS-2014S1012598

PATIENT
  Age: 39 Year
  Sex: Female

DRUGS (2)
  1. MYCOPHENOLATE MOFETIL [Suspect]
     Indication: INTENTIONAL OVERDOSE
     Dosage: 14 000MG
     Route: 048
  2. MYCOPHENOLATE MOFETIL [Suspect]
     Indication: OFF LABEL USE
     Dosage: 14 000MG
     Route: 048

REACTIONS (4)
  - Suicide attempt [Unknown]
  - Intentional overdose [Unknown]
  - Hypotension [Unknown]
  - Headache [Unknown]
